FAERS Safety Report 7535201-7 (Version None)
Quarter: 2011Q2

REPORT INFORMATION
  Report Type: 
  Country: None (occurrence: None)
  Receive Date: 20110609
  Receipt Date: 20090407
  Transmission Date: 20111010
  Serious: Yes (Death)
  Sender: FDA-Public Use
  Company Number: PHHY2009JP06668

PATIENT
  Sex: Male
  Weight: 61 kg

DRUGS (13)
  1. METHYCOBAL [Concomitant]
     Dosage: 1500 UG
     Route: 048
     Dates: start: 20080912, end: 20080923
  2. VALSARTAN [Suspect]
     Dosage: 80 MG, QD
     Route: 048
     Dates: start: 20080408, end: 20080506
  3. LOXONIN [Concomitant]
     Dosage: 180 MG
     Route: 048
     Dates: start: 20080630, end: 20080701
  4. LEVOFLOXACIN [Concomitant]
     Dosage: 300 MG
     Route: 048
     Dates: start: 20080924, end: 20080926
  5. VALSARTAN [Suspect]
     Dosage: 40 MG, QD
     Route: 048
     Dates: start: 20080507, end: 20080926
  6. ROCEPHIN [Concomitant]
     Dosage: 1 G
     Dates: start: 20080630, end: 20080630
  7. VALSARTAN [Suspect]
     Dosage: 40 MG, QD
     Route: 048
     Dates: start: 20080325, end: 20080407
  8. NEOLAMIN 3B INJ. [Concomitant]
     Route: 042
     Dates: start: 20080630, end: 20080630
  9. FLOMAX [Concomitant]
     Dosage: 300 MG
     Route: 048
     Dates: start: 20080630
  10. FLOMAX [Concomitant]
     Dosage: 300 MG, UNK
     Route: 048
     Dates: end: 20080924
  11. FLAVERIC [Concomitant]
     Dosage: 60 MG
     Route: 048
     Dates: start: 20080630, end: 20080701
  12. KAKKON-TO [Concomitant]
     Dosage: 7.5 MG
     Route: 048
     Dates: start: 20080919, end: 20080923
  13. KYLIT [Concomitant]
     Dosage: 300 ML
     Dates: start: 20080630, end: 20080630

REACTIONS (6)
  - CHEST PAIN [None]
  - METASTASES TO CENTRAL NERVOUS SYSTEM [None]
  - NEUROPATHY PERIPHERAL [None]
  - LUNG NEOPLASM MALIGNANT [None]
  - COUGH [None]
  - BRONCHITIS [None]
